FAERS Safety Report 10070352 (Version 1)
Quarter: 2014Q2

REPORT INFORMATION
  Report Type: Spontaneous
  Country: GB (occurrence: GB)
  Receive Date: 20140410
  Receipt Date: 20140410
  Transmission Date: 20141212
  Serious: Yes (Other)
  Sender: FDA-Public Use
  Company Number: GB-PFIZER INC-2014096492

PATIENT
  Age: 36 Year
  Sex: Male

DRUGS (1)
  1. CHAMPIX [Suspect]
     Dosage: 0.5MG AND 1MG
     Route: 048
     Dates: start: 20140312, end: 20140320

REACTIONS (17)
  - Headache [Recovering/Resolving]
  - Arthralgia [Recovering/Resolving]
  - Nausea [Recovering/Resolving]
  - Constipation [Recovering/Resolving]
  - Eye pain [Recovering/Resolving]
  - Tinnitus [Not Recovered/Not Resolved]
  - Mood swings [Recovering/Resolving]
  - Anxiety [Not Recovered/Not Resolved]
  - Myalgia [Unknown]
  - Pruritus [Unknown]
  - Hypoaesthesia [Unknown]
  - Abdominal distension [Unknown]
  - Abdominal discomfort [Unknown]
  - Joint stiffness [Unknown]
  - Musculoskeletal chest pain [Unknown]
  - Lacrimation increased [Unknown]
  - Depressed mood [Unknown]
